FAERS Safety Report 9530945 (Version 1)
Quarter: 2013Q3

REPORT INFORMATION
  Report Type: Spontaneous
  Country: US (occurrence: None)
  Receive Date: 20130916
  Receipt Date: 20130916
  Transmission Date: 20140515
  Serious: No
  Sender: FDA-Public Use
  Company Number: None

PATIENT
  Age: 49 Year
  Sex: Male
  Weight: 100.6 kg

DRUGS (1)
  1. INSULIN [Suspect]
     Indication: DIABETES MELLITUS
     Dosage: ML SQ
     Route: 058
     Dates: start: 20130202, end: 20130619

REACTIONS (7)
  - Abdominal rigidity [None]
  - Eyelid oedema [None]
  - Chromaturia [None]
  - Angioedema [None]
  - Swelling face [None]
  - Abdominal pain [None]
  - Abdominal distension [None]
